FAERS Safety Report 10224497 (Version 1)
Quarter: 2014Q2

REPORT INFORMATION
  Report Type: Report from Study
  Country: BR (occurrence: BR)
  Receive Date: 20140609
  Receipt Date: 20140609
  Transmission Date: 20141212
  Serious: Yes (Death, Other)
  Sender: FDA-Public Use
  Company Number: PHHY2014BR070068

PATIENT
  Sex: Female
  Weight: 60 kg

DRUGS (10)
  1. EXELON [Suspect]
     Indication: LUNG DISORDER
     Dosage: 1 DF, BID (1 CAPSULE OF EACH TREATMENT)
  2. EXELON [Suspect]
     Indication: OFF LABEL USE
  3. CARVEDILOL [Concomitant]
     Indication: CARDIAC DISORDER
     Dosage: 2 DF, BID
     Route: 048
  4. CONCOR [Concomitant]
     Indication: CARDIAC DISORDER
     Dosage: 2 DF, BID
     Route: 048
  5. EPEZ [Concomitant]
     Indication: DEMENTIA ALZHEIMER^S TYPE
     Dosage: 1 DF, DAILY
     Route: 048
  6. BENIL [Concomitant]
     Indication: DEPRESSION
     Dosage: 1 DF, DAILY
     Route: 048
  7. FUROSEMIDE [Concomitant]
     Indication: URINARY RETENTION
     Dosage: 1 DF, DAILY
     Route: 048
  8. MAREVAN [Concomitant]
     Indication: BLOOD DISORDER
     Dosage: 1 DF, DAILY
     Route: 048
  9. DIGOXIN [Concomitant]
     Indication: CARDIAC DISORDER
     Dosage: HALF TABLET DAILY
     Route: 048
  10. SIMVASTATIN [Concomitant]
     Indication: BLOOD CHOLESTEROL
     Dosage: 1 DF, DAILY
     Route: 048

REACTIONS (1)
  - Cardiac failure [Fatal]
